FAERS Safety Report 7632497-8 (Version None)
Quarter: 2011Q3

REPORT INFORMATION
  Report Type: 
  Country: None (occurrence: None)
  Receive Date: 20110725
  Receipt Date: 20100921
  Transmission Date: 20111222
  Serious: Yes (Other)
  Sender: FDA-Public Use
  Company Number: US-BRISTOL-MYERS SQUIBB COMPANY-15295561

PATIENT
  Age: 80 Year
  Sex: Male
  Weight: 102 kg

DRUGS (4)
  1. INSULIN [Concomitant]
  2. SYNTHROID [Concomitant]
  3. BLOOD PRESSURE MEDICATION [Concomitant]
  4. COUMADIN [Suspect]
     Indication: ATRIAL FIBRILLATION
     Dosage: 1DF=BETWEEN 2.5 MG AND 1.25 MG.BEGINNING 2-3 YEARS AGO

REACTIONS (1)
  - INTERNATIONAL NORMALISED RATIO INCREASED [None]
